FAERS Safety Report 14896226 (Version 7)
Quarter: 2021Q2

REPORT INFORMATION
  Report Type: Report from Study
  Country: US (occurrence: US)
  Receive Date: 20180515
  Receipt Date: 20210512
  Transmission Date: 20210716
  Serious: Yes (Other)
  Sender: FDA-Public Use
  Company Number: US-JAZZ-2018-US-007621

PATIENT
  Age: 45 Year
  Sex: Female
  Weight: 109.75 kg

DRUGS (13)
  1. XYREM [Suspect]
     Active Substance: SODIUM OXYBATE
     Indication: NARCOLEPSY
     Dosage: 2.25 G, BID
     Route: 048
     Dates: start: 201709, end: 201709
  2. XYREM [Suspect]
     Active Substance: SODIUM OXYBATE
     Indication: CATAPLEXY
     Dosage: DOSE ADJUSTMENT
     Route: 048
     Dates: start: 201709, end: 201710
  3. HUMALOG [Concomitant]
     Active Substance: INSULIN LISPRO
     Indication: PRODUCT USED FOR UNKNOWN INDICATION
     Dosage: UNK
     Dates: start: 201601
  4. TRAZODONE [Suspect]
     Active Substance: TRAZODONE HYDROCHLORIDE
     Indication: PRODUCT USED FOR UNKNOWN INDICATION
  5. MELATONIN [Suspect]
     Active Substance: MELATONIN
     Indication: PRODUCT USED FOR UNKNOWN INDICATION
     Dosage: 10 MG, QHS
  6. LYRICA [Suspect]
     Active Substance: PREGABALIN
     Indication: PRODUCT USED FOR UNKNOWN INDICATION
  7. PRAMIPEXOLE. [Suspect]
     Active Substance: PRAMIPEXOLE
     Indication: PRODUCT USED FOR UNKNOWN INDICATION
  8. NEURONTIN [Concomitant]
     Active Substance: GABAPENTIN
     Indication: PRODUCT USED FOR UNKNOWN INDICATION
  9. NEUPRO [Suspect]
     Active Substance: ROTIGOTINE
     Indication: RESTLESS LEGS SYNDROME
  10. ROPINIROLE. [Suspect]
     Active Substance: ROPINIROLE
     Indication: PRODUCT USED FOR UNKNOWN INDICATION
  11. ADDERALL [Concomitant]
     Active Substance: AMPHETAMINE ASPARTATE\AMPHETAMINE SULFATE\DEXTROAMPHETAMINE SACCHARATE\DEXTROAMPHETAMINE SULFATE
     Indication: SOMNOLENCE
  12. XYREM [Suspect]
     Active Substance: SODIUM OXYBATE
     Dosage: 4.5 G, BID
     Route: 048
     Dates: start: 201710
  13. ROZEREM [Concomitant]
     Active Substance: RAMELTEON
     Indication: PRODUCT USED FOR UNKNOWN INDICATION
     Dosage: UNK
     Dates: end: 20170920

REACTIONS (28)
  - Drug ineffective [Unknown]
  - Pain [Unknown]
  - Blood pressure increased [Unknown]
  - Headache [Unknown]
  - Gastrooesophageal reflux disease [Unknown]
  - Nightmare [Unknown]
  - Pituitary-dependent Cushing^s syndrome [Not Recovered/Not Resolved]
  - Hepatic steatosis [Unknown]
  - Anxiety [Unknown]
  - Therapeutic response unexpected [Unknown]
  - Sleep apnoea syndrome [Recovering/Resolving]
  - Amnesia [Not Recovered/Not Resolved]
  - Fibromyalgia [Unknown]
  - Pre-existing condition improved [Unknown]
  - Osteoarthritis [Unknown]
  - Trigeminal neuralgia [Not Recovered/Not Resolved]
  - Cardiovascular disorder [Unknown]
  - Pituitary tumour [Not Recovered/Not Resolved]
  - Blood cholesterol increased [Unknown]
  - Gallbladder operation [Unknown]
  - Migraine [Unknown]
  - Muscular weakness [Unknown]
  - Fall [Recovered/Resolved]
  - Nasal congestion [Unknown]
  - Weight increased [Recovered/Resolved]
  - Tachyphrenia [Unknown]
  - Irritability [Unknown]
  - Diabetic neuropathy [Recovering/Resolving]

NARRATIVE: CASE EVENT DATE: 201710
